FAERS Safety Report 5682867-2 (Version None)
Quarter: 2008Q1

REPORT INFORMATION
  Report Type: 
  Country: None (occurrence: None)
  Receive Date: 20080327
  Receipt Date: 20080319
  Transmission Date: 20080703
  Serious: Yes (Other)
  Sender: FDA-Public Use
  Company Number: B0513355A

PATIENT
  Age: 85 Year
  Sex: Female

DRUGS (1)
  1. ARIXTRA [Suspect]
     Dosage: 7.5MG PER DAY
     Route: 058
     Dates: start: 20080201, end: 20080201

REACTIONS (3)
  - HAEMATOMA [None]
  - SKIN HAEMORRHAGE [None]
  - SKIN NECROSIS [None]
